FAERS Safety Report 5512877-7 (Version None)
Quarter: 2007Q4

REPORT INFORMATION
  Report Type: 
  Country: None (occurrence: None)
  Receive Date: 20071112
  Receipt Date: 20071031
  Transmission Date: 20080405
  Serious: Yes (Death, Hospitalization, Congenital Anomaly, Other)
  Sender: FDA-Public Use
  Company Number: A0647030A

PATIENT
  Sex: Male
  Weight: 4.9 kg

DRUGS (4)
  1. PAXIL [Suspect]
     Indication: DEPRESSION
     Dosage: 40MG PER DAY
  2. VITAMIN B6 [Concomitant]
  3. PHENERGAN HCL [Concomitant]
     Indication: NAUSEA
  4. VITAMIN AND MINERAL PRENATAL SUPPLEMENT W/ FOLIC ACID CAP [Concomitant]

REACTIONS (19)
  - APNOEA [None]
  - ASPLENIA [None]
  - ATRIAL SEPTAL DEFECT [None]
  - CARDIAC FAILURE CONGESTIVE [None]
  - CARDIAC VALVE DISEASE [None]
  - CARDIOMEGALY [None]
  - CONGENITAL CARDIOVASCULAR ANOMALY [None]
  - CYANOSIS [None]
  - DRUG EXPOSURE DURING PREGNANCY [None]
  - HAEMORRHAGE [None]
  - HEART DISEASE CONGENITAL [None]
  - METABOLIC ACIDOSIS [None]
  - OEDEMA [None]
  - OXYGEN SATURATION DECREASED [None]
  - PULMONARY OEDEMA [None]
  - PULMONARY VEIN STENOSIS [None]
  - SITUS INVERSUS [None]
  - TRANSPOSITION OF THE GREAT VESSELS [None]
  - VENTRICULAR ARRHYTHMIA [None]
